FAERS Safety Report 9614930 (Version 1)
Quarter: 2013Q4

REPORT INFORMATION
  Report Type: Spontaneous
  Country: US (occurrence: US)
  Receive Date: 20131011
  Receipt Date: 20131011
  Transmission Date: 20140711
  Serious: Yes (Other)
  Sender: FDA-Public Use
  Company Number: US-PFIZER INC-2013287976

PATIENT
  Age: 45 Year
  Sex: Male
  Weight: 77.1 kg

DRUGS (2)
  1. EFFEXOR XR [Suspect]
     Indication: MAJOR DEPRESSION
     Dosage: 300 MG DAILY
     Dates: start: 2007
  2. LAMICTAL [Suspect]
     Indication: MAJOR DEPRESSION
     Dosage: 150 MG, DAILY
     Dates: start: 2008

REACTIONS (1)
  - Hypothyroidism [Unknown]
